FAERS Safety Report 5116975-1 (Version None)
Quarter: 2006Q3

REPORT INFORMATION
  Report Type: 
  Country: None (occurrence: None)
  Receive Date: 20060922
  Receipt Date: 20060912
  Transmission Date: 20061208
  Serious: Yes (Hospitalization)
  Sender: FDA-Public Use
  Company Number: 2006-137371-NL

PATIENT
  Age: 84 Year
  Sex: Male

DRUGS (5)
  1. MIRTAZAPINE [Suspect]
     Indication: DEPRESSION
     Dosage: 30 MG QD
     Route: 048
     Dates: start: 20050624, end: 20050824
  2. MIRTAZAPINE [Suspect]
     Indication: TENSION
     Dosage: 30 MG QD
     Route: 048
     Dates: start: 20050624, end: 20050824
  3. EPROSARTAN MESILATE [Concomitant]
  4. VITAMIN A [Concomitant]
  5. ASPIRIN [Concomitant]

REACTIONS (45)
  - ABDOMINAL PAIN [None]
  - ABNORMAL SENSATION IN EYE [None]
  - ADVERSE DRUG REACTION [None]
  - ANGINA PECTORIS [None]
  - ANGIOPATHY [None]
  - ARTERIAL DISORDER [None]
  - ARTHRALGIA [None]
  - BLOOD CREATININE INCREASED [None]
  - CARDIAC DISORDER [None]
  - CONFUSIONAL STATE [None]
  - DIZZINESS [None]
  - EAR DISCOMFORT [None]
  - EOSINOPHIL COUNT INCREASED [None]
  - FLATULENCE [None]
  - HAEMATOCRIT DECREASED [None]
  - HAEMOGLOBIN DECREASED [None]
  - HALLUCINATION [None]
  - HYPERHIDROSIS [None]
  - IMMUNE SYSTEM DISORDER [None]
  - INFLAMMATION [None]
  - INFLUENZA [None]
  - LETHARGY [None]
  - LEUKOCYTOCLASTIC VASCULITIS [None]
  - MALAISE [None]
  - MOVEMENT DISORDER [None]
  - MUSCLE SPASMS [None]
  - MYALGIA [None]
  - NAUSEA [None]
  - OEDEMA PERIPHERAL [None]
  - PAIN [None]
  - PETECHIAE [None]
  - POLLAKIURIA [None]
  - RED BLOOD CELL COUNT DECREASED [None]
  - RENAL FAILURE [None]
  - RENAL IMPAIRMENT [None]
  - RESPIRATORY DISORDER [None]
  - SOLAR ELASTOSIS [None]
  - SYNOVITIS [None]
  - TENSION HEADACHE [None]
  - TOXICOLOGIC TEST ABNORMAL [None]
  - VASCULITIC RASH [None]
  - VASODILATATION [None]
  - VEIN PAIN [None]
  - VIRAL INFECTION [None]
  - WEIGHT DECREASED [None]
